FAERS Safety Report 18575145 (Version 1)
Quarter: 2020Q4

REPORT INFORMATION
  Report Type: Spontaneous
  Country: US (occurrence: US)
  Receive Date: 20201203
  Receipt Date: 20201203
  Transmission Date: 20210114
  Serious: Yes (Other)
  Sender: FDA-Public Use
  Company Number: US-PFIZER INC-2020474978

PATIENT

DRUGS (4)
  1. METAXALONE. [Suspect]
     Active Substance: METAXALONE
     Indication: OSTEOPOROSIS
  2. METAXALONE. [Suspect]
     Active Substance: METAXALONE
     Indication: INTERVERTEBRAL DISC DEGENERATION
     Dosage: 800 MG
  3. METAXALONE. [Suspect]
     Active Substance: METAXALONE
     Indication: ARTHRITIS
  4. METAXALONE. [Suspect]
     Active Substance: METAXALONE
     Indication: OSTEOARTHRITIS

REACTIONS (1)
  - Hip fracture [Unknown]
